FAERS Safety Report 4735170-9 (Version None)
Quarter: 2005Q3

REPORT INFORMATION
  Report Type: 
  Country: None (occurrence: None)
  Receive Date: 20050804
  Receipt Date: 20050721
  Transmission Date: 20060218
  Serious: Yes (Other)
  Sender: FDA-Public Use
  Company Number: 2005090212

PATIENT
  Sex: Male

DRUGS (4)
  1. VIAGRA [Suspect]
     Indication: ILL-DEFINED DISORDER
     Dosage: ORAL
     Route: 048
  2. ANTIHYPERTENSIVES (ANTIHYPERTENSIVES) [Concomitant]
  3. ZOCOR [Concomitant]
  4. ACETYLSALICYLIC ACID SRT [Concomitant]

REACTIONS (11)
  - BLINDNESS UNILATERAL [None]
  - CATARACT [None]
  - CUTIS LAXA [None]
  - GLAUCOMA [None]
  - HYPERMETROPIA [None]
  - OPTIC DISC DISORDER [None]
  - OPTIC ISCHAEMIC NEUROPATHY [None]
  - OPTIC NERVE DISORDER [None]
  - PUPILLARY REFLEX IMPAIRED [None]
  - SLEEP APNOEA SYNDROME [None]
  - SNORING [None]
